FAERS Safety Report 7748918-6 (Version None)
Quarter: 2011Q3

REPORT INFORMATION
  Report Type: 
  Country: None (occurrence: None)
  Receive Date: 20110914
  Receipt Date: 20110620
  Transmission Date: 20111222
  Serious: Yes (Other)
  Sender: FDA-Public Use
  Company Number: US-BAYER-2011-053551

PATIENT
  Age: 29 Year
  Sex: Female

DRUGS (1)
  1. MIRENA [Suspect]
     Indication: PRODUCT USED FOR UNKNOWN INDICATION
     Dosage: 20 ?G, CONT
     Route: 015

REACTIONS (10)
  - NERVOUS SYSTEM DISORDER [None]
  - FEELING ABNORMAL [None]
  - DISCOMFORT [None]
  - ALOPECIA [None]
  - PREMATURE AGEING [None]
  - ANXIETY [None]
  - INSOMNIA [None]
  - AMNESIA [None]
  - VISUAL ACUITY REDUCED [None]
  - DEVICE BREAKAGE [None]
